FAERS Safety Report 8519259-4 (Version None)
Quarter: 2012Q3

REPORT INFORMATION
  Report Type: 
  Country: None (occurrence: None)
  Receive Date: 20120718
  Receipt Date: 20120709
  Transmission Date: 20120928
  Serious: No
  Sender: FDA-Public Use
  Company Number: US-B.I. PHARMACEUTICALS,INC./RIDGEFIELD-2012-BP-15272BP

PATIENT
  Sex: Female

DRUGS (6)
  1. CETIRIZINE [Concomitant]
     Indication: MULTIPLE ALLERGIES
     Dosage: 10 MG
     Route: 048
  2. FLONASE [Concomitant]
     Indication: MULTIPLE ALLERGIES
     Route: 045
  3. FISH OIL [Concomitant]
     Indication: VITAMIN SUPPLEMENTATION
     Route: 048
  4. PRILOSEC [Concomitant]
     Indication: GASTROOESOPHAGEAL REFLUX DISEASE
     Dosage: 20 MG
     Route: 048
  5. MULTI-VITAMIN [Concomitant]
     Indication: VITAMIN SUPPLEMENTATION
     Route: 048
  6. SPIRIVA [Suspect]
     Indication: UPPER RESPIRATORY TRACT INFECTION
     Dosage: 18 MCG
     Route: 055
     Dates: start: 20120702

REACTIONS (3)
  - PYREXIA [None]
  - MYALGIA [None]
  - INFLUENZA LIKE ILLNESS [None]
